FAERS Safety Report 12935112 (Version 3)
Quarter: 2018Q1

REPORT INFORMATION
  Report Type: Spontaneous
  Country: CA (occurrence: CA)
  Receive Date: 20161114
  Receipt Date: 20180311
  Transmission Date: 20180508
  Serious: Yes (Other)
  Sender: FDA-Public Use
  Company Number: CA-BRISTOL-MYERS SQUIBB COMPANY-BMS-2015-053589

PATIENT
  Age: 70 Year
  Sex: Female

DRUGS (6)
  1. METHOTREXATE. [Suspect]
     Active Substance: METHOTREXATE
     Indication: RHEUMATOID ARTHRITIS
     Route: 065
  2. PREDNISONE. [Concomitant]
     Active Substance: PREDNISONE
     Indication: PRODUCT USED FOR UNKNOWN INDICATION
     Dosage: UNK
     Route: 065
  3. ENBREL [Suspect]
     Active Substance: ETANERCEPT
     Indication: RHEUMATOID ARTHRITIS
     Route: 065
  4. ORENCIA [Suspect]
     Active Substance: ABATACEPT
     Indication: RHEUMATOID ARTHRITIS
     Dosage: UNK
     Route: 065
  5. LYRICA [Suspect]
     Active Substance: PREGABALIN
     Indication: RHEUMATOID ARTHRITIS
     Dosage: UNK
     Route: 048
  6. XELJANZ [Suspect]
     Active Substance: TOFACITINIB CITRATE
     Indication: RHEUMATOID ARTHRITIS
     Dosage: 5 MG, BID
     Route: 048
     Dates: start: 20150817

REACTIONS (7)
  - Glaucoma surgery [Unknown]
  - Herpes zoster [Unknown]
  - Cataract operation [Unknown]
  - Cataract [Unknown]
  - Blood pressure increased [Unknown]
  - Glaucoma [Unknown]
  - Hernia [Unknown]

NARRATIVE: CASE EVENT DATE: 201611
